FAERS Safety Report 18201827 (Version 2)
Quarter: 2020Q3

REPORT INFORMATION
  Report Type: Spontaneous
  Country: US (occurrence: US)
  Receive Date: 20200827
  Receipt Date: 20200903
  Transmission Date: 20201103
  Serious: Yes (Life-Threatening, Hospitalization, Other)
  Sender: FDA-Public Use
  Company Number: US-PFIZER INC-00H-163-0101132-00

PATIENT
  Age: 70 Year
  Sex: Female

DRUGS (5)
  1. OCTREOTIDE ACETATE. [Concomitant]
     Active Substance: OCTREOTIDE ACETATE
     Dosage: UNK
  2. DIATRIZOATE MEGLUMINE [Concomitant]
     Active Substance: DIATRIZOATE MEGLUMINE
     Indication: THERAPEUTIC EMBOLISATION
     Dosage: 10 ML
  3. DOXORUBICIN HCL [Concomitant]
     Active Substance: DOXORUBICIN HYDROCHLORIDE
     Indication: THERAPEUTIC EMBOLISATION
     Dosage: 60 MG (10 ML OF DIATRIZOATE MEGLUMINE)
  4. MEPERIDINE HCL [Suspect]
     Active Substance: MEPERIDINE HYDROCHLORIDE
     Indication: ANALGESIC THERAPY
     Dosage: 10 MG (10 MG PER HOUR, CONTINUOUS INTRAVENOUS INFUSION)
     Route: 042
  5. DEXAMETHASONE SODIUM PHOSPHATE. [Concomitant]
     Active Substance: DEXAMETHASONE SODIUM PHOSPHATE
     Dosage: UNK (FREQ: UNK, 1X, TRANSDERMAL)
     Route: 062

REACTIONS (1)
  - Hypertensive crisis [Recovered/Resolved]
